FAERS Safety Report 10010857 (Version 2)
Quarter: 2014Q1

REPORT INFORMATION
  Report Type: Spontaneous
  Country: US (occurrence: US)
  Receive Date: 20140314
  Receipt Date: 20140314
  Transmission Date: 20141002
  Serious: No
  Sender: FDA-Public Use
  Company Number: US-DRREDDYS-USA/USA/13/0029079

PATIENT
  Age: 88 Year
  Sex: Male
  Weight: 74 kg

DRUGS (3)
  1. CETIRIZINE 10 MG [Suspect]
     Indication: PRURITUS
     Dosage: 10 MG DAILY
     Route: 048
     Dates: start: 20130410, end: 20130412
  2. TAGAMET [Concomitant]
     Indication: PRODUCT USED FOR UNKNOWN INDICATION
     Route: 065
  3. CEPHALEXIN [Concomitant]
     Indication: INFECTION
     Route: 065
     Dates: start: 20130410

REACTIONS (2)
  - Drug ineffective [Unknown]
  - Product quality issue [Unknown]
